FAERS Safety Report 7448795-7 (Version None)
Quarter: 2011Q2

REPORT INFORMATION
  Report Type: 
  Country: None (occurrence: None)
  Receive Date: 20110429
  Receipt Date: 20100806
  Transmission Date: 20111010
  Serious: No
  Sender: FDA-Public Use
  Company Number: US-ASTRAZENECA-2010SE36963

PATIENT
  Age: 19521 Day
  Sex: Female
  Weight: 90.7 kg

DRUGS (3)
  1. LEXAPRO [Concomitant]
  2. TRAZODONE HCL [Concomitant]
  3. NEXIUM [Suspect]
     Indication: ABDOMINAL PAIN UPPER
     Route: 048
     Dates: start: 20100728

REACTIONS (2)
  - DIARRHOEA HAEMORRHAGIC [None]
  - DECREASED APPETITE [None]
